FAERS Safety Report 8772955 (Version 2)
Quarter: 2012Q4

REPORT INFORMATION
  Report Type: 
  Country: US (occurrence: US)
  Receive Date: 20120907
  Receipt Date: 20120907
  Transmission Date: 20130627
  Serious: Yes (Life-Threatening, Hospitalization, Other)
  Sender: FDA-Public Use
  Company Number: US-RANBAXY-2006US-02313

PATIENT
  Age: 6 Hour
  Sex: Male
  Weight: 3.15 kg

DRUGS (3)
  1. ZIDOVUDINE [Suspect]
     Indication: MATERNAL EXPOSURE DURING PREGNANCY
     Dosage: 600 mg/day
     Route: 015
  2. LAMIVUDINE [Suspect]
     Indication: MATERNAL EXPOSURE DURING PREGNANCY
     Dosage: 300 mg/day
     Route: 015
  3. NEVIRAPINE [Suspect]
     Indication: MATERNAL EXPOSURE DURING PREGNANCY
     Dosage: 400 mg/day
     Route: 015

REACTIONS (11)
  - Foetal exposure during pregnancy [Recovered/Resolved]
  - Necrotising enterocolitis neonatal [Recovering/Resolving]
  - Intestinal perforation [Recovered/Resolved]
  - Sepsis [Recovered/Resolved]
  - Floppy infant [Recovered/Resolved]
  - Pallor [Recovered/Resolved]
  - Haematochezia [Recovered/Resolved]
  - Pneumatosis intestinalis [Recovered/Resolved]
  - Pneumoperitoneum [Recovered/Resolved]
  - Caesarean section [None]
  - Agranulocytosis [None]
